FAERS Safety Report 7425782-6 (Version None)
Quarter: 2011Q2

REPORT INFORMATION
  Report Type: 
  Country: None (occurrence: None)
  Receive Date: 20110420
  Receipt Date: 20110406
  Transmission Date: 20111010
  Serious: Yes (Hospitalization)
  Sender: FDA-Public Use
  Company Number: FR-JNJFOC-20110407877

PATIENT
  Sex: Female

DRUGS (2)
  1. INIPOMP [Suspect]
     Indication: NECK PAIN
     Route: 048
  2. ACETAMINOPHEN AND TRAMADOL HCL [Suspect]
     Indication: NECK PAIN
     Route: 048

REACTIONS (3)
  - ANAPHYLACTIC SHOCK [None]
  - TOXIC SKIN ERUPTION [None]
  - CLONUS [None]
